FAERS Safety Report 15997332 (Version 1)
Quarter: 2019Q1

REPORT INFORMATION
  Report Type: Spontaneous
  Country: US (occurrence: US)
  Receive Date: 20190222
  Receipt Date: 20190222
  Transmission Date: 20190418
  Serious: No
  Sender: FDA-Public Use
  Company Number: US-INTERNATIONAL MEDICATION SYSTEMS, LIMITED-2063077

PATIENT
  Sex: Female

DRUGS (1)
  1. AMIODARONE INTRAVENOUS INJECTION [Suspect]
     Active Substance: AMIODARONE
     Route: 041
     Dates: start: 20180311

REACTIONS (3)
  - Nightmare [None]
  - Arrhythmia [Unknown]
  - Sleep disorder [Unknown]
